FAERS Safety Report 6608096-3 (Version None)
Quarter: 2010Q1

REPORT INFORMATION
  Report Type: 
  Country: None (occurrence: None)
  Receive Date: 20100301
  Receipt Date: 20100222
  Transmission Date: 20100710
  Serious: Yes (Death)
  Sender: FDA-Public Use
  Company Number: CHPA2010US03824

PATIENT
  Age: 46 Year
  Sex: Female

DRUGS (10)
  1. DIPHENHYDRAMINE (NCH) [Suspect]
     Dosage: UNK, UNK
     Route: 048
  2. OXYCODONE [Suspect]
     Route: 048
  3. BENZODIAZEPINES [Suspect]
     Route: 048
  4. PROMETHAZINE HCL AND CODEINE [Suspect]
     Route: 048
  5. ALPRAZOLAM [Suspect]
     Route: 048
  6. TEMAZEPAM [Suspect]
     Route: 048
  7. MUSCLE RELAXANTS [Suspect]
     Route: 048
  8. CARBAMAZEPINE [Suspect]
     Route: 048
  9. TRAZODONE HCL [Suspect]
     Route: 048
  10. ^DIPHENHYDRAMINE CLEANER (ANIONIC/NONIONIC)^ [Suspect]
     Route: 048

REACTIONS (1)
  - ACCIDENTAL EXPOSURE [None]
